FAERS Safety Report 19578338 (Version 2)
Quarter: 2024Q3

REPORT INFORMATION
  Report Type: Spontaneous
  Country: PT (occurrence: PT)
  Receive Date: 20210720
  Receipt Date: 20240722
  Transmission Date: 20241016
  Serious: Yes (Hospitalization, Other)
  Sender: CELLTRION
  Company Number: PT-CELLTRION INC.-2021PT009530

PATIENT

DRUGS (18)
  1. HERCEPTIN [Suspect]
     Active Substance: TRASTUZUMAB
     Indication: HER2 positive breast cancer
  2. TRASTUZUMAB [Suspect]
     Active Substance: TRASTUZUMAB
     Indication: Breast cancer
     Dosage: 6 UG/KG, EVERY 3 WEEKS
     Route: 042
     Dates: start: 20190116
  3. TRASTUZUMAB [Suspect]
     Active Substance: TRASTUZUMAB
     Dosage: 6 UG/KG, EVERY 3 WEEKS
     Route: 042
     Dates: start: 20170120, end: 20170323
  4. TRASTUZUMAB [Suspect]
     Active Substance: TRASTUZUMAB
     Dosage: 6 UG/KG, EVERY 3 WEEKS (MOST RECENT DOSE PRIOR TO THE EVENT 04/MAY/2017)
     Route: 042
     Dates: start: 20170504, end: 20170830
  5. TRASTUZUMAB [Suspect]
     Active Substance: TRASTUZUMAB
     Dosage: 6 UG/KG, EVERY 3 WEEKS
     Route: 042
     Dates: start: 20180221, end: 20181218
  6. TRASTUZUMAB [Suspect]
     Active Substance: TRASTUZUMAB
     Dosage: 6 UG/KG, EVERY 3 WEEKS (MOST RECENT DOSE PRIOR TO THE EVENT ON10/OCT/2017)
     Route: 042
     Dates: start: 20171010, end: 20180102
  7. ZOLEDRONIC ACID [Suspect]
     Active Substance: ZOLEDRONIC ACID
     Indication: Breast cancer
     Dosage: 5 UG/KG, EVERY 3 WEEKS
     Route: 042
     Dates: start: 20190221
  8. ZOLEDRONIC ACID [Suspect]
     Active Substance: ZOLEDRONIC ACID
     Dosage: 5 UG/KG, EVERY 3 WEEKS
     Route: 042
     Dates: start: 20180830, end: 20190116
  9. PERTUZUMAB [Suspect]
     Active Substance: PERTUZUMAB
     Indication: Breast cancer
     Dosage: 420 UG, EVERY 3 WEEKS
     Route: 042
     Dates: start: 20170213, end: 20170323
  10. PERTUZUMAB [Suspect]
     Active Substance: PERTUZUMAB
     Dosage: 420 UG, EVERY 3 WEEKS (MOST RECENT DOSE PRIOR TO EVENT ON 04/MAY/2017)
     Route: 042
     Dates: start: 20170504, end: 20170731
  11. DOCETAXEL [Suspect]
     Active Substance: DOCETAXEL\DOCETAXEL ANHYDROUS
     Indication: Breast cancer
     Dosage: 75 UG/M2, EVERY 3 WEEKS (MOST RECENT DOSE PRIOR TO THE EVENT: 23/MAR/2017 AND 04/MAY/2017)
     Route: 042
     Dates: start: 20170120
  12. DIAZEPAM [Concomitant]
     Active Substance: DIAZEPAM
     Dosage: UNK
     Dates: start: 20180319
  13. TAZOBACTAM [Concomitant]
     Active Substance: TAZOBACTAM
     Indication: Large intestine infection
  14. PIPERACILLIN [Concomitant]
     Active Substance: PIPERACILLIN
     Indication: Large intestine infection
  15. OMEPRAZOLE [Concomitant]
     Active Substance: OMEPRAZOLE
     Dosage: UNK
     Dates: start: 20170615
  16. OLANZAPINE [Concomitant]
     Active Substance: OLANZAPINE
     Dosage: UNK
     Dates: start: 20170615, end: 20190401
  17. CAPTOPRIL [Concomitant]
     Active Substance: CAPTOPRIL
     Dosage: UNK
     Dates: start: 20180313, end: 20190214
  18. VALPROATE SODIUM [Concomitant]
     Active Substance: VALPROATE SODIUM
     Dosage: UNK
     Dates: start: 20180319

REACTIONS (3)
  - Influenza [Recovered/Resolved]
  - Respiratory tract infection [Recovered/Resolved]
  - Intentional product use issue [Unknown]

NARRATIVE: CASE EVENT DATE: 20180121
